FAERS Safety Report 20474912 (Version 1)
Quarter: 2022Q1

REPORT INFORMATION
  Report Type: Spontaneous
  Country: US (occurrence: US)
  Receive Date: 20220215
  Receipt Date: 20220215
  Transmission Date: 20220423
  Serious: Yes (Hospitalization, Other)
  Sender: FDA-Public Use
  Company Number: US-TOLMAR, INC.-22US032864

PATIENT
  Age: 79 Year
  Sex: Male

DRUGS (8)
  1. ELIGARD [Suspect]
     Active Substance: LEUPROLIDE ACETATE
     Indication: Prostate cancer
     Dosage: 22.5 MILLIGRAM, Q 3 MONTH
  2. BICALUTAMIDE [Suspect]
     Active Substance: BICALUTAMIDE
     Indication: Prostate cancer
     Dosage: 50 MILLIGRAM, QD
  3. FLUOROURACIL SODIUM [Suspect]
     Active Substance: FLUOROURACIL SODIUM
     Indication: Anal cancer
     Dosage: 1000 MILLIGRAM PER SQUARE METRE, QD
  4. FLUOROURACIL SODIUM [Suspect]
     Active Substance: FLUOROURACIL SODIUM
     Indication: Prostate cancer
  5. MITOMYCIN C [Suspect]
     Active Substance: MITOMYCIN
     Indication: Anal cancer
     Dosage: 10 MILLIGRAM PER SQUARE METRE
  6. MITOMYCIN C [Suspect]
     Active Substance: MITOMYCIN
     Indication: Prostate cancer
  7. UNSPECIFIED INGREDIENT [Suspect]
     Active Substance: UNSPECIFIED INGREDIENT
     Indication: Radiotherapy
     Dosage: UNK
  8. UNSPECIFIED INGREDIENT [Suspect]
     Active Substance: UNSPECIFIED INGREDIENT
     Indication: Brachytherapy
     Dosage: UNK

REACTIONS (5)
  - Dehydration [Unknown]
  - Neutropenia [Unknown]
  - Lower urinary tract symptoms [Unknown]
  - Diarrhoea [Unknown]
  - Pollakiuria [Unknown]
